FAERS Safety Report 21680509 (Version 2)
Quarter: 2023Q1

REPORT INFORMATION
  Report Type: Report from Study
  Country: IE (occurrence: IE)
  Receive Date: 20221205
  Receipt Date: 20230116
  Transmission Date: 20230417
  Serious: Yes (Other)
  Sender: FDA-Public Use
  Company Number: IE-002147023-NVSC2022IE246175

PATIENT
  Age: 50 Year
  Sex: Female

DRUGS (1)
  1. GILENYA [Suspect]
     Active Substance: FINGOLIMOD HYDROCHLORIDE
     Indication: Relapsing-remitting multiple sclerosis
     Dosage: 0.5 MG, QD
     Route: 048
     Dates: start: 20221101

REACTIONS (7)
  - Cardiac flutter [Not Recovered/Not Resolved]
  - Amnesia [Not Recovered/Not Resolved]
  - Bradycardia [Recovered/Resolved]
  - Multiple sclerosis relapse [Not Recovered/Not Resolved]
  - Limb discomfort [Unknown]
  - Hypoaesthesia [Unknown]
  - Myalgia [Unknown]

NARRATIVE: CASE EVENT DATE: 20221101
